FAERS Safety Report 9336947 (Version 1)
Quarter: 2013Q2

REPORT INFORMATION
  Report Type: Report from Study
  Country: GB (occurrence: GB)
  Receive Date: 20130607
  Receipt Date: 20130607
  Transmission Date: 20140414
  Serious: Yes (Other)
  Sender: FDA-Public Use
  Company Number: GB-MERCK-1306GBR000165

PATIENT
  Age: 60 Year
  Sex: Male
  Weight: 60 kg

DRUGS (3)
  1. RIBAVIRIN [Suspect]
     Indication: HEPATITIS C
     Dosage: 600/400 MG, BID
     Route: 048
     Dates: start: 20110827, end: 201111
  2. RIBAVIRIN [Suspect]
     Dosage: 200 MG, BID
     Route: 048
     Dates: start: 201111, end: 20120727
  3. PEGASYS [Suspect]
     Indication: HEPATITIS C
     Dosage: 180 MICROGRAM, QW
     Route: 058
     Dates: start: 20110827, end: 20120727

REACTIONS (2)
  - Gynaecomastia [Recovered/Resolved]
  - Anaemia [Recovered/Resolved]
